FAERS Safety Report 7190562-6 (Version None)
Quarter: 2010Q4

REPORT INFORMATION
  Report Type: 
  Country: None (occurrence: None)
  Receive Date: 20101221
  Receipt Date: 20101221
  Transmission Date: 20110411
  Serious: No
  Sender: FDA-Public Use
  Company Number: None

PATIENT
  Age: 16 Year
  Sex: Male
  Weight: 54.4316 kg

DRUGS (1)
  1. MAGNEVIST [Suspect]
     Indication: NUCLEAR MAGNETIC RESONANCE IMAGING
     Dosage: 11CC'S 1 IV
     Route: 042
     Dates: start: 20101217, end: 20101217

REACTIONS (5)
  - CHEST DISCOMFORT [None]
  - OROPHARYNGEAL PAIN [None]
  - PARAESTHESIA [None]
  - PARAESTHESIA ORAL [None]
  - VOMITING [None]
